FAERS Safety Report 21848387 (Version 2)
Quarter: 2023Q2

REPORT INFORMATION
  Report Type: Spontaneous
  Country: JP (occurrence: JP)
  Receive Date: 20230111
  Receipt Date: 20230405
  Transmission Date: 20230722
  Serious: No
  Sender: FDA-Public Use
  Company Number: JP-CHEMOCENTRYX, INC.-2022JPCCXI0610

PATIENT

DRUGS (2)
  1. TAVNEOS [Suspect]
     Active Substance: AVACOPAN
     Indication: Microscopic polyangiitis
     Dosage: 60 MG PER DAY
     Route: 048
     Dates: start: 202211, end: 202211
  2. Cyclophosphamide hydrate (CYCLOPHOSPHAMIDE MONOHYDRATE) [Concomitant]
     Indication: Microscopic polyangiitis

REACTIONS (2)
  - Hepatic function abnormal [Recovered/Resolved]
  - Blood bilirubin increased [Recovering/Resolving]

NARRATIVE: CASE EVENT DATE: 20221101
